FAERS Safety Report 4768227-7 (Version None)
Quarter: 2005Q3

REPORT INFORMATION
  Report Type: 
  Country: None (occurrence: None)
  Receive Date: 20050912
  Receipt Date: 20050824
  Transmission Date: 20060218
  Serious: Yes (Hospitalization, Disabling)
  Sender: FDA-Public Use
  Company Number: 401236

PATIENT
  Age: 18 Year
  Sex: Female
  Weight: 81.6 kg

DRUGS (2)
  1. ACCUTANE [Suspect]
     Indication: ACNE CYSTIC
     Dosage: 40 MG 2 PER DAY ORAL
     Route: 048
     Dates: start: 19941021, end: 19960621
  2. DESOGEN (DESOGESTREL/ETHINYL ESTRADIOL) [Concomitant]

REACTIONS (34)
  - ACNE [None]
  - ANAL FISSURE [None]
  - ANAL FISTULA [None]
  - ANAL SKIN TAGS [None]
  - COLITIS [None]
  - COMEDONE [None]
  - CONDITION AGGRAVATED [None]
  - CROHN'S DISEASE [None]
  - DYSGEUSIA [None]
  - HAEMORRHOIDS [None]
  - HEADACHE [None]
  - HERPES ZOSTER [None]
  - INDURATION [None]
  - INFLAMMATORY BOWEL DISEASE [None]
  - IRRITABLE BOWEL SYNDROME [None]
  - MULTI-ORGAN DISORDER [None]
  - NASOPHARYNGITIS [None]
  - OESOPHAGEAL CANDIDIASIS [None]
  - ORAL CANDIDIASIS [None]
  - PAIN IN EXTREMITY [None]
  - PALPITATIONS [None]
  - PARAESTHESIA [None]
  - PERIANAL ABSCESS [None]
  - PLANTAR FASCIITIS [None]
  - POLYURIA [None]
  - POST PROCEDURAL DISCOMFORT [None]
  - PRURITUS GENERALISED [None]
  - PSEUDOPOLYP [None]
  - RECTAL HAEMORRHAGE [None]
  - RECTAL ULCER [None]
  - SKIN PAPILLOMA [None]
  - STOOL ANALYSIS ABNORMAL [None]
  - THIRST [None]
  - URINARY TRACT INFECTION [None]
